FAERS Safety Report 8551463-1 (Version None)
Quarter: 2012Q3

REPORT INFORMATION
  Report Type: 
  Country: None (occurrence: None)
  Receive Date: 20120730
  Receipt Date: 20120725
  Transmission Date: 20120928
  Serious: Yes (Hospitalization, Other)
  Sender: FDA-Public Use
  Company Number: PHHY2012FR051908

PATIENT
  Sex: Female
  Weight: 72 kg

DRUGS (2)
  1. PRONTALGINE [Concomitant]
     Dosage: UNK UKN, UNK
  2. GILENYA [Suspect]
     Indication: MULTIPLE SCLEROSIS
     Dosage: 0.5 MG, QD
     Route: 048
     Dates: start: 20120321

REACTIONS (3)
  - RETINAL ISCHAEMIA [None]
  - AMAUROSIS FUGAX [None]
  - HEADACHE [None]
